FAERS Safety Report 8895475 (Version 1)
Quarter: 2012Q4

REPORT INFORMATION
  Report Type: 
  Country: SE (occurrence: SE)
  Receive Date: 20121108
  Receipt Date: 20121108
  Transmission Date: 20130627
  Serious: Yes (Life-Threatening)
  Sender: FDA-Public Use
  Company Number: SE-B.I. PHARMACEUTICALS,INC./RIDGEFIELD-2012-SW-00789SW

PATIENT
  Sex: Female

DRUGS (11)
  1. PRADAXA [Suspect]
     Indication: HYPERTENSIVE HEART DISEASE
     Dosage: 300 mg
     Dates: start: 201203, end: 20120918
  2. PRADAXA [Suspect]
     Indication: CARDIAC FAILURE
  3. LYRICA [Concomitant]
     Dosage: Formulation: capsule, hard; 100mg
  4. NITROLINGUAL [Concomitant]
     Dosage: Formulation: sublingual spray 0.4 mg/dose
  5. AMLODIPIN ACCORD [Concomitant]
     Dosage: Strength: 5 mg
  6. ZOPIKLON PILUM [Concomitant]
     Dosage: Formulation: film-coated tablet 7.5 mg
  7. LEVAXIN [Concomitant]
     Dosage: Strength: 100 mcg
  8. BEHEPAN [Concomitant]
     Dosage: Formulation: film-coated tablet 1 mg
  9. PREDNISOLON PFIZER [Concomitant]
     Dosage: Strength: 5 mg
  10. IMOVANE [Concomitant]
     Dosage: Strength: 5 mg
  11. FURIX RETARD [Concomitant]
     Dosage: Formulation: prolonged-release capsule, hard 30 mg

REACTIONS (5)
  - Haematochezia [Unknown]
  - Gastrointestinal haemorrhage [Unknown]
  - Incorrect dose administered [Unknown]
  - Diarrhoea [Unknown]
  - Dizziness [Unknown]
